FAERS Safety Report 9883119 (Version 1)
Quarter: 2014Q1

REPORT INFORMATION
  Report Type: Spontaneous
  Country: US (occurrence: None)
  Receive Date: 20140205
  Receipt Date: 20140205
  Transmission Date: 20141002
  Serious: Yes (Death, Hospitalization)
  Sender: FDA-Public Use
  Company Number: IMP_07117_2014

PATIENT
  Age: 33 Year
  Sex: Female

DRUGS (8)
  1. METFORMIN [Suspect]
     Route: 048
  2. HYDROXYCHLOROQUINE SULFATE [Suspect]
     Route: 048
  3. ACETAMINOPHEN W/DIPHENHYDRAMINE HYDROCHLORIDE [Suspect]
     Route: 048
  4. HYDROXYZINE [Suspect]
     Route: 048
  5. COCAINE [Suspect]
     Dosage: CRACK COCAINE
     Route: 048
  6. ALPRAZOLAM [Suspect]
  7. PREGABALIN [Suspect]
  8. NAPROXEN [Concomitant]

REACTIONS (12)
  - Unresponsive to stimuli [None]
  - Respiratory depression [None]
  - Bradycardia [None]
  - Hypotension [None]
  - Aspiration [None]
  - Bundle branch block left [None]
  - Haemodialysis [None]
  - Hyperventilation [None]
  - Overdose [None]
  - Blood lactic acid increased [None]
  - Mydriasis [None]
  - Drug ineffective [None]
